FAERS Safety Report 18811952 (Version 1)
Quarter: 2021Q1

REPORT INFORMATION
  Report Type: Report from Study
  Country: TW (occurrence: TW)
  Receive Date: 20210129
  Receipt Date: 20210129
  Transmission Date: 20210419
  Serious: Yes (Death)
  Sender: FDA-Public Use
  Company Number: TW-ASTRAZENECA-2021A018734

PATIENT
  Age: 76 Year
  Sex: Male

DRUGS (1)
  1. IMFINZI [Suspect]
     Active Substance: DURVALUMAB
     Route: 042
     Dates: start: 20210107

REACTIONS (1)
  - Death [Fatal]

NARRATIVE: CASE EVENT DATE: 20210126
